FAERS Safety Report 10441385 (Version 7)
Quarter: 2015Q1

REPORT INFORMATION
  Report Type: Report from Study
  Country: NZ (occurrence: NZ)
  Receive Date: 20140909
  Receipt Date: 20150328
  Transmission Date: 20150720
  Serious: Yes (Other)
  Sender: FDA-Public Use
  Company Number: NZ-ABBVIE-14K-118-1251032-00

PATIENT
  Sex: Female

DRUGS (7)
  1. PROZAC [Suspect]
     Active Substance: FLUOXETINE HYDROCHLORIDE
     Indication: PRODUCT USED FOR UNKNOWN INDICATION
     Route: 065
  2. HUMIRA [Suspect]
     Active Substance: ADALIMUMAB
     Indication: RHEUMATOID ARTHRITIS
     Route: 065
  3. FOSAMAX [Suspect]
     Active Substance: ALENDRONATE SODIUM
     Indication: OSTEOARTHRITIS
     Route: 065
  4. NORTRIPTYLINE [Suspect]
     Active Substance: NORTRIPTYLINE
     Indication: ARTHRALGIA
     Route: 065
  5. METHOTREXATE [Suspect]
     Active Substance: METHOTREXATE
     Indication: PRODUCT USED FOR UNKNOWN INDICATION
     Route: 065
     Dates: end: 201411
  6. METHOTREXATE [Suspect]
     Active Substance: METHOTREXATE
     Dosage: REDUCED DOSE IN NOV2014 BY 5MG
     Route: 065
     Dates: start: 201411
  7. NORTRIPTYLINE [Suspect]
     Active Substance: NORTRIPTYLINE
     Indication: BACK PAIN
     Route: 065

REACTIONS (22)
  - Spinal compression fracture [Unknown]
  - Anxiety [Recovering/Resolving]
  - General physical health deterioration [Unknown]
  - Spinal disorder [Unknown]
  - Osteoarthritis [Unknown]
  - Depression [Not Recovered/Not Resolved]
  - Back pain [Unknown]
  - Stress [Unknown]
  - Nerve compression [Unknown]
  - Constipation [Unknown]
  - Drug ineffective [Unknown]
  - Anxiety [Unknown]
  - Gastrooesophageal reflux disease [Unknown]
  - Pain in extremity [Unknown]
  - Arthralgia [Unknown]
  - Pain [Unknown]
  - Gait disturbance [Unknown]
  - Intervertebral disc protrusion [Unknown]
  - Lumbar vertebral fracture [Unknown]
  - Arthralgia [Unknown]
  - Pain in extremity [Unknown]
  - Weight increased [Unknown]

NARRATIVE: CASE EVENT DATE: 2014
